FAERS Safety Report 12595908 (Version 2)
Quarter: 2016Q3

REPORT INFORMATION
  Report Type: Report from Study
  Country: US (occurrence: US)
  Receive Date: 20160726
  Receipt Date: 20160922
  Transmission Date: 20161109
  Serious: No
  Sender: FDA-Public Use
  Company Number: US-AMGEN-USASL2016022357

PATIENT
  Age: 62 Year
  Sex: Male

DRUGS (6)
  1. KYPROLIS [Suspect]
     Active Substance: CARFILZOMIB
     Dosage: EVERY WED AND THURS FOR 3 WEEKS AND THEN HAS 1 WEEK OFF
     Route: 065
     Dates: start: 2015
  2. NEUPOGEN [Suspect]
     Active Substance: FILGRASTIM
     Indication: PRODUCT USED FOR UNKNOWN INDICATION
     Dosage: UNK
     Route: 065
  3. DEXAMETHASONE. [Concomitant]
     Active Substance: DEXAMETHASONE
     Dosage: UNK
  4. NEUPOGEN [Suspect]
     Active Substance: FILGRASTIM
     Dosage: TWICE WEEKLY FOR THREE WEEKS AND THEN OFF A WEEK
     Route: 065
  5. NPLATE [Suspect]
     Active Substance: ROMIPLOSTIM
     Indication: THROMBOCYTOPENIA
     Dosage: QWK
     Route: 065
     Dates: start: 2016
  6. KYPROLIS [Suspect]
     Active Substance: CARFILZOMIB
     Indication: PLASMA CELL MYELOMA
     Dosage: 2XWK W/TH FOR 3 WEEKS AND THEN OFF A WEEK
     Route: 065

REACTIONS (5)
  - Arthritis [Unknown]
  - Therapeutic response unexpected [Unknown]
  - Platelet count abnormal [Unknown]
  - Influenza [Unknown]
  - Muscle spasms [Unknown]

NARRATIVE: CASE EVENT DATE: 2015
